FAERS Safety Report 8511231 (Version 6)
Quarter: 2012Q4

REPORT INFORMATION
  Report Type: 
  Country: US (occurrence: US)
  Receive Date: 20120413
  Receipt Date: 20121227
  Transmission Date: 20130627
  Serious: Yes (Hospitalization)
  Sender: FDA-Public Use
  Company Number: US-ASTRAZENECA-2011SE22175

PATIENT
  Age: 88 Year
  Sex: Female

DRUGS (4)
  1. NEXIUM [Suspect]
     Route: 048
  2. NEXIUM [Suspect]
     Dosage: TWO CAPSULES
     Route: 048
  3. NEXIUM [Suspect]
     Route: 048
  4. PEPCID AC [Concomitant]

REACTIONS (20)
  - Hiatus hernia [Unknown]
  - Back injury [Unknown]
  - Dyspepsia [Unknown]
  - Gastric disorder [Unknown]
  - Dyspepsia [Unknown]
  - Hypoacusis [Unknown]
  - Musculoskeletal pain [Unknown]
  - Musculoskeletal disorder [Unknown]
  - Arthritis [Unknown]
  - Oesophagitis [Unknown]
  - Throat irritation [Unknown]
  - Influenza [Unknown]
  - Oropharyngeal pain [Unknown]
  - Cardiac disorder [Unknown]
  - Nervousness [Unknown]
  - Malaise [Unknown]
  - Confusional state [Unknown]
  - Abdominal pain upper [Unknown]
  - Off label use [Unknown]
  - Drug dose omission [Unknown]
